FAERS Safety Report 12788367 (Version 1)
Quarter: 2016Q3

REPORT INFORMATION
  Report Type: Spontaneous
  Country: CA (occurrence: CA)
  Receive Date: 20160928
  Receipt Date: 20160928
  Transmission Date: 20161109
  Serious: Yes (Other)
  Sender: FDA-Public Use
  Company Number: CA-TEVA-695914ACC

PATIENT
  Sex: Male

DRUGS (3)
  1. PRIMIDONE. [Concomitant]
     Active Substance: PRIMIDONE
     Dates: start: 201509
  2. ACT-LEVETIRACETAM [Suspect]
     Active Substance: LEVETIRACETAM
     Dosage: 500 MILLIGRAM DAILY; STRENGTH 250MG; TWICE DAILY, IN THE MORNING AND AT BEDTIME
     Route: 048
  3. ACT-LEVETIRACETAM [Suspect]
     Active Substance: LEVETIRACETAM
     Dosage: 250 MILLIGRAM DAILY; STRENGTH 250MG; AT BEDTIME
     Route: 048
     Dates: start: 201509

REACTIONS (2)
  - Seizure [Not Recovered/Not Resolved]
  - Somnolence [Recovering/Resolving]
